FAERS Safety Report 24379397 (Version 1)
Quarter: 2024Q3

REPORT INFORMATION
  Report Type: Spontaneous
  Country: US (occurrence: US)
  Receive Date: 20240930
  Receipt Date: 20240930
  Transmission Date: 20241017
  Serious: No
  Sender: BAYER
  Company Number: US-BAYER-2024A139042

PATIENT
  Age: 80 Year
  Sex: Male

DRUGS (1)
  1. CLARITIN LIQUI-GELS [Suspect]
     Active Substance: LORATADINE
     Indication: Product used for unknown indication
     Dosage: I TOOK 1 PILL EVERY DAY FOR 9 DAYS.
     Route: 048

REACTIONS (1)
  - Faeces hard [Unknown]
